FAERS Safety Report 15536743 (Version 1)
Quarter: 2018Q4

REPORT INFORMATION
  Report Type: Spontaneous
  Country: US (occurrence: US)
  Receive Date: 20181022
  Receipt Date: 20181022
  Transmission Date: 20190205
  Serious: No
  Sender: FDA-Public Use
  Company Number: None

PATIENT
  Age: 52 Year
  Sex: Male
  Weight: 65.25 kg

DRUGS (14)
  1. MULTIVITAMIN [Concomitant]
     Active Substance: VITAMINS
  2. VITAMIN D3 [Concomitant]
     Active Substance: CHOLECALCIFEROL
  3. ACETAMINOPHEN. [Concomitant]
     Active Substance: ACETAMINOPHEN
  4. KRILL OIL [Concomitant]
     Active Substance: DIETARY SUPPLEMENT
  5. RANITIDINE. [Concomitant]
     Active Substance: RANITIDINE
  6. ECODRINK MULTIVITAMIN [Concomitant]
  7. PREDNISONE 20 MG TABLET [Suspect]
     Active Substance: PREDNISONE
     Indication: MUSCLE SPASMS
     Dosage: ?          QUANTITY:3 TABLET(S);?
     Route: 048
     Dates: start: 20181017, end: 20181021
  8. LISINOPRIL/HCTZ [Concomitant]
     Active Substance: HYDROCHLOROTHIAZIDE\LISINOPRIL
  9. COQ10 [Concomitant]
     Active Substance: UBIDECARENONE
  10. MAGNESIUM OXIDE. [Concomitant]
     Active Substance: MAGNESIUM OXIDE
  11. FENOFIBRATE. [Concomitant]
     Active Substance: FENOFIBRATE
  12. ROLAIDS [Concomitant]
     Active Substance: CALCIUM CARBONATE\MAGNESIUM HYDROXIDE
  13. ZINK/COPPER [Concomitant]
  14. CYCLOBENZAPRINE. [Concomitant]
     Active Substance: CYCLOBENZAPRINE

REACTIONS (6)
  - Constipation [None]
  - Lymphadenopathy [None]
  - Laryngitis [None]
  - Bowel movement irregularity [None]
  - Decreased appetite [None]
  - Lymph node pain [None]

NARRATIVE: CASE EVENT DATE: 20181018
